FAERS Safety Report 9822199 (Version 1)
Quarter: 2014Q1

REPORT INFORMATION
  Report Type: Spontaneous
  Country: US (occurrence: US)
  Receive Date: 20140116
  Receipt Date: 20140116
  Transmission Date: 20141002
  Serious: No
  Sender: FDA-Public Use
  Company Number: US-TEVA-456195USA

PATIENT
  Age: 52 Year
  Sex: Female
  Weight: 83.54 kg

DRUGS (5)
  1. COPAXONE [Suspect]
     Indication: MULTIPLE SCLEROSIS
     Dates: start: 2010
  2. QVAR [Concomitant]
     Indication: ASTHMA
  3. LISINOPRIL [Concomitant]
     Indication: BLOOD PRESSURE ABNORMAL
  4. TOPROL XL [Concomitant]
     Indication: BLOOD PRESSURE
  5. DOXAZOSIN [Concomitant]
     Indication: BLOOD PRESSURE

REACTIONS (8)
  - Asthenia [Not Recovered/Not Resolved]
  - Pain [Not Recovered/Not Resolved]
  - Paraesthesia [Not Recovered/Not Resolved]
  - Swelling [Not Recovered/Not Resolved]
  - Pruritus [Not Recovered/Not Resolved]
  - Nodule [Not Recovered/Not Resolved]
  - Contusion [Not Recovered/Not Resolved]
  - Injection site reaction [Not Recovered/Not Resolved]
